FAERS Safety Report 4277553-X (Version None)
Quarter: 2004Q1

REPORT INFORMATION
  Report Type: 
  Country: None (occurrence: None)
  Receive Date: 20040121
  Receipt Date: 20040114
  Transmission Date: 20041129
  Serious: Yes (Other)
  Sender: FDA-Public Use
  Company Number: 200410241BCC

PATIENT
  Sex: Female
  Weight: 45.3597 kg

DRUGS (2)
  1. RID MOUSSE [Suspect]
     Indication: LICE INFESTATION
     Dosage: ONCE, TOPICAL
     Route: 061
     Dates: start: 20040113
  2. UNSPECIFIED ANTI-SEIZURE MEDICATION [Concomitant]

REACTIONS (1)
  - GRAND MAL CONVULSION [None]
